FAERS Safety Report 8109993-2 (Version None)
Quarter: 2012Q1

REPORT INFORMATION
  Report Type: 
  Country: None (occurrence: None)
  Receive Date: 20120202
  Receipt Date: 20120123
  Transmission Date: 20120608
  Serious: No
  Sender: FDA-Public Use
  Company Number: US-AMGEN-USASP2011068572

PATIENT
  Age: 12 Year
  Sex: Female
  Weight: 32.9 kg

DRUGS (4)
  1. METHOTREXATE [Concomitant]
     Dosage: UNK
     Dates: start: 20090101
  2. NAPROXEN [Concomitant]
  3. FOLIC ACID [Concomitant]
  4. ENBREL [Suspect]
     Indication: JUVENILE ARTHRITIS
     Dosage: 25 MG, QWK
     Dates: start: 20111201

REACTIONS (1)
  - VIRAL UPPER RESPIRATORY TRACT INFECTION [None]
